FAERS Safety Report 9290606 (Version 1)
Quarter: 2013Q2

REPORT INFORMATION
  Report Type: Spontaneous
  Country: CH (occurrence: CH)
  Receive Date: 20130515
  Receipt Date: 20130515
  Transmission Date: 20140414
  Serious: Yes (Death, Other)
  Sender: FDA-Public Use
  Company Number: PHHY2013CH047239

PATIENT
  Age: 83 Year
  Sex: Female

DRUGS (11)
  1. CO-DIOVAN [Suspect]
     Dosage: 1 DF, QD
     Route: 048
  2. DIOVAN [Suspect]
     Dosage: 40 MG, QD
     Route: 048
  3. ESIDREX [Suspect]
     Dosage: 25 MG, UNK
     Route: 048
  4. ZANIDIP [Suspect]
     Dosage: 10 MG, QD
     Route: 048
  5. ASPIRIN CARDIO [Suspect]
  6. CONCOR [Suspect]
     Dosage: 10 MG, QD
     Route: 048
  7. ALDACTONE [Suspect]
     Dosage: 25 MG, QD
     Route: 048
  8. GLIMEPIRIDE [Concomitant]
     Dosage: 20 MG, QD
     Route: 048
  9. VICTOZA [Concomitant]
     Dosage: 0.6 MG, QD
     Route: 058
  10. IMOVANE [Concomitant]
     Dosage: 7.5 MG, QD
     Route: 048
  11. ELTROXIN [Concomitant]
     Dosage: 0.05 MG, QD
     Route: 048

REACTIONS (12)
  - Cerebral haemorrhage [Fatal]
  - Intracranial pressure increased [Fatal]
  - Hemiplegia [Unknown]
  - Epilepsy [Unknown]
  - Blood pressure increased [Unknown]
  - Speech disorder [Unknown]
  - Fall [Unknown]
  - Malaise [Unknown]
  - General physical health deterioration [Unknown]
  - Somnolence [Unknown]
  - Incorrect dose administered [Unknown]
  - Drug ineffective [Unknown]
